FAERS Safety Report 11539662 (Version 1)
Quarter: 2015Q3

REPORT INFORMATION
  Report Type: Spontaneous
  Country: GB (occurrence: GB)
  Receive Date: 20150923
  Receipt Date: 20150923
  Transmission Date: 20151125
  Serious: Yes (Other)
  Sender: FDA-Public Use
  Company Number: PHFR2015GB006880

PATIENT
  Sex: Male

DRUGS (2)
  1. CLOZARIL [Suspect]
     Active Substance: CLOZAPINE
     Indication: SCHIZOPHRENIA
     Dosage: 175 MG, QD
     Route: 048
     Dates: start: 20150827
  2. CLOZARIL [Suspect]
     Active Substance: CLOZAPINE
     Dosage: 125 MG, QD
     Route: 048

REACTIONS (6)
  - C-reactive protein increased [Recovering/Resolving]
  - White blood cell count increased [Unknown]
  - Neutrophil count increased [Unknown]
  - Tachycardia [Unknown]
  - Troponin increased [Recovering/Resolving]
  - Eosinophilia [Recovering/Resolving]
